FAERS Safety Report 11200368 (Version 1)
Quarter: 2015Q2

REPORT INFORMATION
  Report Type: Report from Study
  Country: FR (occurrence: FR)
  Receive Date: 20150618
  Receipt Date: 20150618
  Transmission Date: 20150821
  Serious: Yes (Death)
  Sender: FDA-Public Use
  Company Number: FR-ASTRAZENECA-2015SE57317

PATIENT
  Age: 65 Year
  Sex: Male

DRUGS (4)
  1. RADIOTHERAPIE [Suspect]
     Active Substance: RADIATION THERAPY
     Indication: PROSTATE CANCER
     Dosage: TOTAL DOSE RECEIVED 66 GY
     Route: 065
     Dates: start: 20080131, end: 20080317
  2. RADIOTHERAPIE [Suspect]
     Active Substance: RADIATION THERAPY
     Indication: PROSTATE CANCER
     Dosage: 2 GY
     Route: 065
  3. ZOLADEX [Suspect]
     Active Substance: GOSERELIN ACETATE
     Indication: PROSTATE CANCER
     Dosage: TOTAL DOSE RECEIVED 21.6 MG
     Route: 058
     Dates: start: 20080201, end: 20080505
  4. ZOLADEX [Suspect]
     Active Substance: GOSERELIN ACETATE
     Indication: PROSTATE CANCER
     Dosage: 10.8 MG
     Route: 058

REACTIONS (1)
  - Angioimmunoblastic T-cell lymphoma [Fatal]

NARRATIVE: CASE EVENT DATE: 20130613
